FAERS Safety Report 24988911 (Version 1)
Quarter: 2025Q1

REPORT INFORMATION
  Report Type: Spontaneous
  Country: US (occurrence: US)
  Receive Date: 20250220
  Receipt Date: 20250220
  Transmission Date: 20250409
  Serious: No
  Sender: DR REDDYS
  Company Number: US-DRL-USA-USA/2025/02/002283

PATIENT

DRUGS (2)
  1. ACCUTANE [Suspect]
     Active Substance: ISOTRETINOIN
     Indication: Product used for unknown indication
     Route: 050
  2. ACCUTANE [Suspect]
     Active Substance: ISOTRETINOIN
     Route: 050

REACTIONS (1)
  - Drug intolerance [Unknown]
